FAERS Safety Report 5729209-1 (Version None)
Quarter: 2008Q2

REPORT INFORMATION
  Report Type: 
  Country: None (occurrence: None)
  Receive Date: 20080506
  Receipt Date: 20080429
  Transmission Date: 20081010
  Serious: Yes (Death)
  Sender: FDA-Public Use
  Company Number: DE-ROCHE-556861

PATIENT
  Sex: Male
  Weight: 74 kg

DRUGS (20)
  1. INTERFERON ALFA-2A [Suspect]
     Indication: METASTATIC RENAL CELL CARCINOMA
     Route: 058
     Dates: start: 20080204
  2. BEVACIZUMAB [Suspect]
     Indication: METASTATIC RENAL CELL CARCINOMA
     Route: 042
     Dates: start: 20080204, end: 20080411
  3. VINBLASTINE SULFATE [Suspect]
     Indication: METASTATIC RENAL CELL CARCINOMA
     Route: 042
     Dates: start: 20080204, end: 20080411
  4. METOCLOPRAMIDE HYDROCHLORIDE [Concomitant]
     Indication: PROPHYLAXIS
     Dosage: REPORTED AS 3X20 DROPS DAILY
     Route: 065
     Dates: start: 20080204
  5. PARACETAMOL [Concomitant]
     Indication: PROPHYLAXIS
     Dosage: REPORTED AS PARACETAMOL 500. DOSE REGIMEN REPORTED AS 2-2-2 TABLETS DAILY
     Dates: start: 20080204
  6. RAMIPRIL [Concomitant]
     Indication: HYPERTONIA
     Dates: start: 20070201
  7. ALLOPURINOL [Concomitant]
     Dosage: REPORTED AS 0.5-0-0 TABLETS DAILY
     Dates: start: 20020101
  8. NEORECORMON [Concomitant]
     Dates: start: 20080227, end: 20080227
  9. MICARDIS HCT [Concomitant]
     Indication: HYPERTONIA
     Dosage: STRENGTH REPORTED AS 40/12.5 REPORTED AS 1-0-0 TABLETS DAILY
     Dates: start: 20080311
  10. MICARDIS HCT [Concomitant]
     Dosage: STRENGTH REPORTED AS 40/12.5 REPORTED AS 1-0-0 TABLETS DAILY
     Dates: start: 20080311
  11. CARMEN [Concomitant]
     Indication: HYPERTONIA
     Dosage: DRUG NAME REPORTED AS CARMEN ACE 10. REPORTED AS 1-0-1 TABLETS DAILY
     Dates: start: 20080311
  12. NOVAMIN [Concomitant]
     Indication: PROPHYLAXIS
     Dosage: REPORTED AS 1-1-1 TABLETS DAILY TAKEN ON INTERFERON DAYS
     Dates: start: 20080204
  13. NOVAMIN [Concomitant]
     Dosage: REPORTED AS 1-1-1 TABLETS DAILY TAKEN ON INTERFERON DAYS
     Dates: start: 20080204
  14. IBUPROFEN TABLETS [Concomitant]
     Dosage: REPORTED AS 1-1-1 TABLETS DAILY
  15. NEXIUM [Concomitant]
     Dosage: REPORTED AS 1-0-0 TABLETS DAILY
  16. LERCANIDIPIN [Concomitant]
     Dosage: REPORTED AS LERCANIDIPIN 10. DOSE REGIMEN REPORTED AS 1-0-1.
  17. METOCLOPRAMID [Concomitant]
     Dosage: DOSE REGIMEN REPORTED AS 3 X 20 G H.
  18. ESOMEPRAZOLE [Concomitant]
     Dosage: REPORTEDA S ESOMEPRAZOL 40. DOSE REGIMEN REPORTED AS 1-0-0.
  19. FENTANYL [Concomitant]
     Dosage: REPORTED AS FENTANYL TTS. ADMINISTERED OVER 3 DAYS AT DOSE REGIMEN OF 25 MCG/H.
  20. TELMISARTAN [Concomitant]
     Dosage: REPORTEDA S TELMISARTAN HYDROCHLOROTHIAZID. DOSE REGIMEN REPORTED AS 1-0-0.

REACTIONS (2)
  - ABDOMINAL PAIN [None]
  - SYSTEMIC INFLAMMATORY RESPONSE SYNDROME [None]
